FAERS Safety Report 7127605-1 (Version None)
Quarter: 2010Q4

REPORT INFORMATION
  Report Type: 
  Country: None (occurrence: None)
  Receive Date: 20101130
  Receipt Date: 20101102
  Transmission Date: 20110411
  Serious: Yes (Hospitalization)
  Sender: FDA-Public Use
  Company Number: DE-AMGEN-DEUCT2010003173

PATIENT

DRUGS (7)
  1. ENBREL [Suspect]
     Indication: PSORIATIC ARTHROPATHY
     Dosage: 50 MG, QWK
     Route: 058
     Dates: start: 20090327, end: 20090902
  2. ETANERCEPT [Suspect]
     Dosage: 50 MG, QWK
     Route: 058
     Dates: start: 20090918
  3. PANTOPRAZOLE SODIUM [Concomitant]
  4. METYPRED [Concomitant]
  5. NEURONTIN [Concomitant]
  6. TILIDALOR [Concomitant]
  7. CALCIMAGON [Concomitant]

REACTIONS (5)
  - ATRIAL FIBRILLATION [None]
  - BARRETT'S OESOPHAGUS [None]
  - BRADYARRHYTHMIA [None]
  - GASTRITIS [None]
  - REFLUX OESOPHAGITIS [None]
